FAERS Safety Report 18118736 (Version 1)
Quarter: 2020Q3

REPORT INFORMATION
  Report Type: Report from Study
  Country: US (occurrence: US)
  Receive Date: 20200806
  Receipt Date: 20200806
  Transmission Date: 20201103
  Serious: Yes (Other)
  Sender: FDA-Public Use
  Company Number: US-GILEAD-2020-0488730

PATIENT
  Sex: Female

DRUGS (1)
  1. AXICABTAGENE CILOLEUCEL [Suspect]
     Active Substance: AXICABTAGENE CILOLEUCEL
     Indication: DIFFUSE LARGE B-CELL LYMPHOMA
     Dosage: UNK
     Route: 042
     Dates: start: 201804, end: 201804

REACTIONS (6)
  - Neuropathy peripheral [Unknown]
  - Acute respiratory distress syndrome [Unknown]
  - General physical health deterioration [Unknown]
  - Cell-mediated immune deficiency [Not Recovered/Not Resolved]
  - Micturition urgency [Unknown]
  - Sepsis [Unknown]
